FAERS Safety Report 11126263 (Version 2)
Quarter: 2015Q3

REPORT INFORMATION
  Report Type: Report from Study
  Country: FR (occurrence: FR)
  Receive Date: 20150520
  Receipt Date: 20150923
  Transmission Date: 20151125
  Serious: Yes (Disabling, Other)
  Sender: FDA-Public Use
  Company Number: PHHY2014FR132774

PATIENT
  Age: 83 Year
  Sex: Male

DRUGS (1)
  1. EXJADE [Suspect]
     Active Substance: DEFERASIROX
     Indication: MYELODYSPLASTIC SYNDROME
     Dosage: 1500 MG, DAILY
     Route: 048
     Dates: start: 20140217, end: 20140227

REACTIONS (4)
  - Dizziness [Not Recovered/Not Resolved]
  - Creatinine renal clearance decreased [Unknown]
  - Labyrinthitis [Not Recovered/Not Resolved]
  - Deafness unilateral [Not Recovered/Not Resolved]

NARRATIVE: CASE EVENT DATE: 20140526
